FAERS Safety Report 6038853-6 (Version None)
Quarter: 2009Q1

REPORT INFORMATION
  Report Type: 
  Country: None (occurrence: None)
  Receive Date: 20090114
  Receipt Date: 20090114
  Transmission Date: 20090719
  Serious: No
  Sender: FDA-Public Use
  Company Number: None

PATIENT
  Age: 57 Year
  Sex: Female
  Weight: 68.0396 kg

DRUGS (1)
  1. CELEXA [Suspect]
     Indication: DEPRESSION
     Dosage: 1 TABLET 1 PER DAY PO
     Route: 048
     Dates: start: 20081031, end: 20081231

REACTIONS (3)
  - BURNING MOUTH SYNDROME [None]
  - DRY MOUTH [None]
  - PRODUCT QUALITY ISSUE [None]
